FAERS Safety Report 7325907-7 (Version None)
Quarter: 2011Q1

REPORT INFORMATION
  Report Type: 
  Country: None (occurrence: None)
  Receive Date: 20110302
  Receipt Date: 20110218
  Transmission Date: 20110831
  Serious: Yes (Other)
  Sender: FDA-Public Use
  Company Number: CN-SANOFI-AVENTIS-2011SA010639

PATIENT

DRUGS (2)
  1. OXALIPLATIN [Suspect]
     Indication: RECTAL CANCER
  2. CAPECITABINE [Suspect]
     Indication: RECTAL CANCER

REACTIONS (2)
  - VESICAL FISTULA [None]
  - HAEMATOTOXICITY [None]
